FAERS Safety Report 10494689 (Version 2)
Quarter: 2014Q4

REPORT INFORMATION
  Report Type: Spontaneous
  Country: US (occurrence: US)
  Receive Date: 20141003
  Receipt Date: 20141201
  Transmission Date: 20150528
  Serious: Yes (Death, Hospitalization, Disabling, Other)
  Sender: FDA-Public Use
  Company Number: US-UCBSA-2014013002

PATIENT
  Age: 81 Year
  Sex: Female
  Weight: 89.8 kg

DRUGS (10)
  1. VIMPAT [Suspect]
     Active Substance: LACOSAMIDE
     Indication: SEIZURE
     Dosage: FOR ABOUT 6 YEARS
     Route: 048
  2. ALTACE [Concomitant]
     Active Substance: RAMIPRIL
     Indication: PRODUCT USED FOR UNKNOWN INDICATION
     Dosage: UNK
  3. ZOCOR [Concomitant]
     Active Substance: SIMVASTATIN
     Indication: PRODUCT USED FOR UNKNOWN INDICATION
     Dosage: UNK
  4. LEXAPRO [Concomitant]
     Active Substance: ESCITALOPRAM OXALATE
     Dosage: UNK
  5. LOVASTATIN. [Concomitant]
     Active Substance: LOVASTATIN
     Indication: BLOOD CHOLESTEROL INCREASED
     Dosage: 40 MG, ONCE DAILY (QD)
     Route: 048
     Dates: end: 20140923
  6. VIMPAT [Suspect]
     Active Substance: LACOSAMIDE
     Dosage: 150 MG, 2X/DAY (BID)
     Route: 048
     Dates: start: 201408, end: 20140923
  7. CITALOPRAM [Concomitant]
     Active Substance: CITALOPRAM HYDROBROMIDE
     Indication: DEPRESSION
     Dosage: 40 MG, ONCE DAILY (QD), 6 YEARS
     Route: 048
     Dates: end: 20140923
  8. KEPPRA [Suspect]
     Active Substance: LEVETIRACETAM
     Dosage: 750 MG, 2X/DAY (BID)
     Route: 048
     Dates: start: 201408, end: 20140923
  9. FUROSEMIDE. [Concomitant]
     Active Substance: FUROSEMIDE
     Indication: PERIPHERAL SWELLING
     Dosage: 40 MG, 2X/DAY (BID)
     Route: 048
     Dates: start: 201309, end: 20140923
  10. KEPPRA [Suspect]
     Active Substance: LEVETIRACETAM
     Indication: SEIZURE
     Dosage: FOR ABOUT A YEAR
     Route: 048

REACTIONS (5)
  - Fall [Fatal]
  - Head injury [Unknown]
  - Seizure [Fatal]
  - Deep vein thrombosis [Recovered/Resolved]
  - Parkinsonism [Fatal]

NARRATIVE: CASE EVENT DATE: 201309
